FAERS Safety Report 4349235-7 (Version None)
Quarter: 2004Q2

REPORT INFORMATION
  Report Type: 
  Country: None (occurrence: None)
  Receive Date: 20040428
  Receipt Date: 20040420
  Transmission Date: 20050107
  Serious: Yes (Death)
  Sender: FDA-Public Use
  Company Number: JP-MERCK-0404USA01931

PATIENT
  Age: 80 Year
  Sex: Female

DRUGS (3)
  1. CEFOPERAZONE SODIUM AND SULBACTAM SODIUM [Concomitant]
     Indication: INFECTION
     Route: 065
     Dates: start: 20040307, end: 20040310
  2. PRIMAXIN [Suspect]
     Route: 042
     Dates: start: 20040212, end: 20040226
  3. PRIMAXIN [Suspect]
     Indication: INFECTION
     Route: 042
     Dates: start: 20040311, end: 20040315

REACTIONS (4)
  - DERMATITIS EXFOLIATIVE [None]
  - DRUG ERUPTION [None]
  - HEPATIC ENZYME INCREASED [None]
  - STEVENS-JOHNSON SYNDROME [None]
